FAERS Safety Report 16391148 (Version 1)
Quarter: 2019Q2

REPORT INFORMATION
  Report Type: Spontaneous
  Country: US (occurrence: US)
  Receive Date: 20190604
  Receipt Date: 20190604
  Transmission Date: 20190711
  Serious: No
  Sender: FDA-Public Use
  Company Number: US-KALA PHARAMACEUTICALS-2019KLA00002

PATIENT
  Age: 74 Year
  Sex: Female

DRUGS (3)
  1. BESIVANCE [Concomitant]
     Active Substance: BESIFLOXACIN
     Dosage: 1 GTT, 2X/DAY
     Dates: start: 20190130, end: 20190207
  2. INVELTYS [Suspect]
     Active Substance: LOTEPREDNOL ETABONATE
     Indication: CATARACT OPERATION
     Dosage: 1 GTT, 2X/DAY
     Route: 047
     Dates: start: 20190130, end: 20190211
  3. EPIDIOLEX [Concomitant]
     Active Substance: CANNABIDIOL

REACTIONS (2)
  - Iritis [Recovered/Resolved]
  - Ocular hyperaemia [Recovered/Resolved]

NARRATIVE: CASE EVENT DATE: 20190130
